FAERS Safety Report 9527674 (Version 1)
Quarter: 2013Q1

REPORT INFORMATION
  Report Type: Spontaneous
  Country: US (occurrence: None)
  Receive Date: 20130314
  Receipt Date: 20130314
  Transmission Date: 20140127
  Serious: No
  Sender: FDA-Public Use
  Company Number: 1211USA007143

PATIENT
  Age: 58 Year
  Sex: Male

DRUGS (3)
  1. VICTRELIS (BOCEPREVIR) CAPSULE [Suspect]
     Indication: HEPATITIS C
     Route: 048
     Dates: start: 20121116
  2. RIBAVIRIN (RIBAVIRIN) CAPSULE [Suspect]
     Route: 048
     Dates: start: 20121010
  3. PEGASYS (PEGINTERFERON ALFA-2A) [Suspect]
     Indication: HEPATITIS C
     Dates: start: 20121010

REACTIONS (6)
  - Nervousness [None]
  - Weight decreased [None]
  - Dyspnoea [None]
  - Dry skin [None]
  - Decreased appetite [None]
  - Dysgeusia [None]
